FAERS Safety Report 16133118 (Version 1)
Quarter: 2019Q2

REPORT INFORMATION
  Report Type: Spontaneous
  Country: US (occurrence: US)
  Receive Date: 20190328
  Receipt Date: 20190328
  Transmission Date: 20190711
  Serious: Yes (Other)
  Sender: FDA-Public Use
  Company Number: None

PATIENT
  Age: 43 Year
  Sex: Male

DRUGS (1)
  1. BUPRENORPHINE/NALOXONE TABLETS, 8-2 MG [Suspect]
     Active Substance: BUPRENORPHINE\NALOXONE
     Indication: DRUG DEPENDENCE
     Route: 048

REACTIONS (6)
  - Nausea [None]
  - Product solubility abnormal [None]
  - Drug ineffective [None]
  - Product substitution issue [None]
  - Drug dependence [None]
  - Hyperhidrosis [None]

NARRATIVE: CASE EVENT DATE: 20190327
